FAERS Safety Report 8718416 (Version 2)
Quarter: 2013Q4

REPORT INFORMATION
  Report Type: Spontaneous
  Country: US (occurrence: US)
  Receive Date: 20120810
  Receipt Date: 20131101
  Transmission Date: 20140711
  Serious: No
  Sender: FDA-Public Use
  Company Number: US-009507513-1208USA003843

PATIENT
  Age: 14 Year
  Sex: Male

DRUGS (2)
  1. CLARITIN REDITABS [Suspect]
     Indication: SEASONAL ALLERGY
     Dosage: 20 MG, ONCE
     Route: 048
     Dates: start: 20120729
  2. CLARITIN REDITABS [Suspect]
     Dosage: 10 MG, QD
     Route: 048

REACTIONS (1)
  - Accidental overdose [Unknown]
